FAERS Safety Report 24133126 (Version 4)
Quarter: 2024Q3

REPORT INFORMATION
  Report Type: Spontaneous
  Country: US (occurrence: US)
  Receive Date: 20240724
  Receipt Date: 20240731
  Transmission Date: 20241016
  Serious: No
  Sender: ROCHE
  Company Number: US-ROCHE-10000029596

PATIENT
  Age: 62 Year
  Sex: Male
  Weight: 81.19 kg

DRUGS (3)
  1. ESBRIET [Suspect]
     Active Substance: PIRFENIDONE
     Indication: Idiopathic pulmonary fibrosis
     Route: 048
  2. OFEV [Concomitant]
     Active Substance: NINTEDANIB
     Indication: Idiopathic pulmonary fibrosis
     Dosage: FOR 18 MONTHS
     Route: 048
  3. OXYGEN [Concomitant]
     Active Substance: OXYGEN

REACTIONS (1)
  - Hernia [Unknown]
